FAERS Safety Report 22110059 (Version 4)
Quarter: 2023Q2

REPORT INFORMATION
  Report Type: Spontaneous
  Country: BR (occurrence: BR)
  Receive Date: 20230317
  Receipt Date: 20230517
  Transmission Date: 20230722
  Serious: Yes (Other)
  Sender: FDA-Public Use
  Company Number: BR-009507513-2303BRA005138

PATIENT
  Age: 40 Year
  Sex: Female

DRUGS (8)
  1. KEYTRUDA [Suspect]
     Active Substance: PEMBROLIZUMAB
     Dosage: 200 MILLIGRAM, Q3W
     Dates: start: 20210821, end: 202208
  2. CLOMIPRAMINE [Concomitant]
     Active Substance: CLOMIPRAMINE
     Indication: Obsessive-compulsive disorder
  3. ROSUVASTATIN [Concomitant]
     Active Substance: ROSUVASTATIN
     Indication: Dyslipidaemia
  4. PACLITAXEL [Concomitant]
     Active Substance: PACLITAXEL
     Indication: Triple negative breast cancer
     Dosage: 80 MG/M2, QW
     Dates: end: 202208
  5. CARBOPLATIN [Concomitant]
     Active Substance: CARBOPLATIN
     Indication: Triple negative breast cancer
     Dosage: AUC 1,5 (WEEKLY) (KEYNOTE 522 PROTOCOL)
     Dates: end: 202208
  6. DOXORUBICIN [Concomitant]
     Active Substance: DOXORUBICIN
     Indication: Triple negative breast cancer
     Dosage: 60 MG/M2
     Dates: end: 202208
  7. CYCLOPHOSPHAMIDE [Concomitant]
     Active Substance: CYCLOPHOSPHAMIDE
     Indication: Triple negative breast cancer
     Dosage: 600 MG/M2
     Dates: end: 202208
  8. COVID-19 VACCINE [Concomitant]

REACTIONS (6)
  - Hysterectomy [Recovered/Resolved]
  - Salpingo-oophorectomy bilateral [Recovered/Resolved]
  - Focal nodular hyperplasia [Recovered/Resolved]
  - Hypothyroidism [Recovering/Resolving]
  - Preventive surgery [Recovered/Resolved]
  - Acquired gene mutation [Unknown]

NARRATIVE: CASE EVENT DATE: 20211027
